FAERS Safety Report 5963375-8 (Version None)
Quarter: 2008Q4

REPORT INFORMATION
  Report Type: 
  Country: None (occurrence: None)
  Receive Date: 20081124
  Receipt Date: 20081118
  Transmission Date: 20090506
  Serious: Yes (Other)
  Sender: FDA-Public Use
  Company Number: B0541141A

PATIENT
  Age: 39 Year
  Sex: Male
  Weight: 67 kg

DRUGS (4)
  1. ZOVIRAX [Suspect]
     Dosage: 250MG THREE TIMES PER DAY
     Route: 042
     Dates: start: 20080914, end: 20080925
  2. ROCEPHIN [Suspect]
     Dosage: 1G TWICE PER DAY
     Route: 042
     Dates: start: 20080914, end: 20080925
  3. GLYCEOL [Concomitant]
     Dosage: 400ML PER DAY
     Dates: start: 20080914, end: 20080925
  4. LOXONIN [Concomitant]
     Indication: HEADACHE
     Route: 048
     Dates: start: 20080914, end: 20080927

REACTIONS (2)
  - HEPATIC FUNCTION ABNORMAL [None]
  - HEPATIC STEATOSIS [None]
